FAERS Safety Report 17753932 (Version 1)
Quarter: 2020Q2

REPORT INFORMATION
  Report Type: Spontaneous
  Country: US (occurrence: US)
  Receive Date: 20200506
  Receipt Date: 20200506
  Transmission Date: 20200714
  Serious: No
  Sender: FDA-Public Use
  Company Number: US-ROCHE-2478726

PATIENT
  Sex: Female

DRUGS (10)
  1. ATORVASTATIN CALCIUM. [Concomitant]
     Active Substance: ATORVASTATIN CALCIUM
  2. LEVODOPA [Concomitant]
     Active Substance: LEVODOPA
  3. ESBRIET [Suspect]
     Active Substance: PIRFENIDONE
     Indication: INFECTIVE EXACERBATION OF CHRONIC OBSTRUCTIVE AIRWAYS DISEASE
     Route: 048
  4. INCRUSE ELLIPTA [Concomitant]
     Active Substance: UMECLIDINIUM BROMIDE
  5. MIRCERA [Concomitant]
     Active Substance: METHOXY POLYETHYLENE GLYCOL-EPOETIN BETA
     Route: 065
  6. GABAPENTIN. [Concomitant]
     Active Substance: GABAPENTIN
  7. MONTELUKAST SODIUM. [Concomitant]
     Active Substance: MONTELUKAST SODIUM
  8. IBUPROFEN. [Concomitant]
     Active Substance: IBUPROFEN
  9. POLYETHYLENE GLYCOL [MACROGOL] [Concomitant]
  10. PROLIA [Concomitant]
     Active Substance: DENOSUMAB

REACTIONS (2)
  - Off label use [Unknown]
  - Liver function test increased [Not Recovered/Not Resolved]
